FAERS Safety Report 22758274 (Version 5)
Quarter: 2023Q4

REPORT INFORMATION
  Report Type: Report from Study
  Country: US (occurrence: US)
  Receive Date: 20230727
  Receipt Date: 20231027
  Transmission Date: 20240110
  Serious: Yes (Other)
  Sender: FDA-Public Use
  Company Number: US-HORIZON THERAPEUTICS-HZN-2023-003231

PATIENT

DRUGS (8)
  1. TEPEZZA [Suspect]
     Active Substance: TEPROTUMUMAB-TRBW
     Indication: Endocrine ophthalmopathy
     Dosage: FIRST INFUSION, 20 MG/KG, EVERY 3 WEEKS
     Route: 042
     Dates: start: 20230426
  2. TEPEZZA [Suspect]
     Active Substance: TEPROTUMUMAB-TRBW
     Indication: Toxic goitre
     Dosage: SECOND INFUSION
     Route: 042
     Dates: start: 20230517
  3. TEPEZZA [Suspect]
     Active Substance: TEPROTUMUMAB-TRBW
     Dosage: THIRD INFUSION
     Route: 042
     Dates: start: 20230607
  4. TEPEZZA [Suspect]
     Active Substance: TEPROTUMUMAB-TRBW
     Dosage: FOURTH INFUSION
     Route: 042
     Dates: start: 20230628
  5. METFORMIN [Concomitant]
     Active Substance: METFORMIN HYDROCHLORIDE
  6. METHIMAZOLE [Concomitant]
     Active Substance: METHIMAZOLE
  7. METHYLPREDNISOLONE [Concomitant]
     Active Substance: METHYLPREDNISOLONE
  8. LUMIFY [Concomitant]
     Active Substance: BRIMONIDINE TARTRATE

REACTIONS (5)
  - Diabetes mellitus inadequate control [Recovering/Resolving]
  - Myalgia [Unknown]
  - Impaired work ability [Unknown]
  - Muscle spasms [Recovering/Resolving]
  - Therapeutic product effect incomplete [Unknown]

NARRATIVE: CASE EVENT DATE: 20230101
